FAERS Safety Report 8697008 (Version 2)
Quarter: 2012Q4

REPORT INFORMATION
  Report Type: 
  Country: US (occurrence: US)
  Receive Date: 20120801
  Receipt Date: 20120830
  Transmission Date: 20130627
  Serious: Yes (Hospitalization)
  Sender: FDA-Public Use
  Company Number: US-PFIZER INC-2012185952

PATIENT
  Age: 33 Year
  Sex: Female
  Weight: 45.35 kg

DRUGS (8)
  1. PRISTIQ [Suspect]
     Indication: DEPRESSION
     Dosage: 50 mg, daily
     Dates: start: 201205, end: 201206
  2. PRISTIQ [Suspect]
     Indication: PANIC ATTACK
     Dosage: 100 mg, daily
     Dates: start: 201206, end: 201206
  3. PRISTIQ [Suspect]
     Indication: AGORAPHOBIA
  4. EFFEXOR [Suspect]
     Indication: DEPRESSION
     Dosage: 175 mg, daily
     Dates: start: 201206, end: 201207
  5. EFFEXOR [Suspect]
     Indication: PANIC ATTACK
  6. EFFEXOR [Suspect]
     Indication: AGORAPHOBIA
  7. ZONEGRAN [Concomitant]
     Indication: EPILEPSY
     Dosage: 200 mg, daily
  8. KLONOPIN [Concomitant]
     Indication: PANIC ATTACK
     Dosage: 2 mg, UNK

REACTIONS (4)
  - Suicidal ideation [Unknown]
  - Mental disorder [Unknown]
  - Drug ineffective [Unknown]
  - Drug intolerance [Unknown]
